FAERS Safety Report 20176292 (Version 1)
Quarter: 2021Q4

REPORT INFORMATION
  Report Type: Spontaneous
  Country: CZ (occurrence: CZ)
  Receive Date: 20211213
  Receipt Date: 20211213
  Transmission Date: 20220303
  Serious: Yes (Other)
  Sender: FDA-Public Use
  Company Number: CZ-PFIZER INC-202101722957

PATIENT
  Sex: Male

DRUGS (8)
  1. MYLOTARG [Suspect]
     Active Substance: GEMTUZUMAB OZOGAMICIN
     Indication: Acute myeloid leukaemia
     Dosage: 5 MG ON DAY 1, 4, 7
     Route: 042
     Dates: start: 20201005, end: 20201011
  2. DAUNORUBICIN [Suspect]
     Active Substance: DAUNORUBICIN
     Indication: Acute myeloid leukaemia
     Dosage: 114 MG ON DAYS 1-3
     Route: 042
     Dates: start: 20201005, end: 20201007
  3. CYTARABINE [Suspect]
     Active Substance: CYTARABINE
     Indication: Acute myeloid leukaemia
     Dosage: 380 MG ON DAYS 1-7, CONTINUOUS I.V. INFUSION
     Route: 042
     Dates: start: 20201005, end: 20201011
  4. MYCAMINE [Concomitant]
     Active Substance: MICAFUNGIN SODIUM
     Indication: Antifungal prophylaxis
  5. DEXAMETHASONE [Concomitant]
     Active Substance: DEXAMETHASONE
     Indication: Prophylaxis
  6. MEROMYCIN [ERYTHROMYCIN] [Concomitant]
  7. VANCOMYCIN [Concomitant]
     Active Substance: VANCOMYCIN
  8. METRONIDAZOLE [Concomitant]
     Active Substance: METRONIDAZOLE

REACTIONS (12)
  - Febrile neutropenia [Unknown]
  - Staphylococcal sepsis [Unknown]
  - Thrombocytopenia [Unknown]
  - Fungal infection [Unknown]
  - Sepsis [Unknown]
  - Alanine aminotransferase increased [Recovering/Resolving]
  - Colitis [Unknown]
  - Bronchitis [Unknown]
  - Splenomegaly [Unknown]
  - Epistaxis [Unknown]
  - Pyrexia [Recovered/Resolved]
  - Chills [Recovered/Resolved]

NARRATIVE: CASE EVENT DATE: 20201001
